FAERS Safety Report 5948620-7 (Version None)
Quarter: 2008Q4

REPORT INFORMATION
  Report Type: 
  Country: None (occurrence: None)
  Receive Date: 20081111
  Receipt Date: 20081106
  Transmission Date: 20090506
  Serious: Yes (Hospitalization)
  Sender: FDA-Public Use
  Company Number: FR-MERCK-0811FRA00016

PATIENT
  Age: 26 Year
  Sex: Male

DRUGS (1)
  1. ZOCOR [Suspect]
     Indication: TYPE IIA HYPERLIPIDAEMIA
     Route: 048
     Dates: start: 20050101, end: 20081028

REACTIONS (2)
  - RHABDOMYOLYSIS [None]
  - SHOCK [None]
